FAERS Safety Report 14604397 (Version 2)
Quarter: 2018Q1

REPORT INFORMATION
  Report Type: Spontaneous
  Country: JP (occurrence: JP)
  Receive Date: 20180306
  Receipt Date: 20180319
  Transmission Date: 20180509
  Serious: Yes (Other)
  Sender: FDA-Public Use
  Company Number: JP-MYLANLABS-2018M1015522

PATIENT
  Age: 5 Year
  Sex: Male
  Weight: 16 kg

DRUGS (5)
  1. BRUFEN [Suspect]
     Active Substance: IBUPROFEN
     Indication: INFLAMMATION
  2. BRUFEN [Suspect]
     Active Substance: IBUPROFEN
     Indication: PYREXIA
     Dosage: 300 MG, UNK ( DAILY DOSE 100MG)
     Route: 048
     Dates: start: 20180209, end: 20180210
  3. FAMOTIDINE. [Concomitant]
     Active Substance: FAMOTIDINE
     Indication: PRODUCT USED FOR UNKNOWN INDICATION
     Dosage: 16 MG, UNK
     Route: 048
     Dates: start: 20180209
  4. MAGNESIUM OXIDE. [Concomitant]
     Active Substance: MAGNESIUM OXIDE
     Indication: PRODUCT USED FOR UNKNOWN INDICATION
     Dosage: 1.5 G, UNK
     Dates: start: 20180210, end: 20180214
  5. BRUFEN [Suspect]
     Active Substance: IBUPROFEN
     Indication: INFLAMMATION

REACTIONS (1)
  - Hypothermia [Recovered/Resolved]

NARRATIVE: CASE EVENT DATE: 20180210
